FAERS Safety Report 9868154 (Version 1)
Quarter: 2014Q1

REPORT INFORMATION
  Report Type: Report from Study
  Country: DE (occurrence: DE)
  Receive Date: 20140204
  Receipt Date: 20140204
  Transmission Date: 20141002
  Serious: No
  Sender: FDA-Public Use
  Company Number: PHHY2014DE013039

PATIENT
  Sex: Male
  Weight: 81 kg

DRUGS (10)
  1. AMN107 [Suspect]
     Indication: CHRONIC MYELOID LEUKAEMIA
     Dosage: 600 MG, PER DAY
     Dates: start: 20130716
  2. AMN107 [Suspect]
     Dosage: 300 MG, PER DAY
     Dates: start: 20130828, end: 20131017
  3. ASS [Concomitant]
     Dates: start: 200404
  4. SIMVASTATIN [Concomitant]
     Dates: start: 200404
  5. PANTOPRAZOL [Concomitant]
     Dates: start: 20091201
  6. RAMIPLUS AL [Concomitant]
     Dates: start: 20120821
  7. METOPROLOL [Concomitant]
     Dates: start: 20120821
  8. IBUPROFEN [Concomitant]
     Dates: start: 20120821
  9. BUSCOPAN [Concomitant]
     Dates: start: 20131015
  10. FURO [Concomitant]
     Dates: start: 20130102

REACTIONS (2)
  - Visual impairment [Recovered/Resolved]
  - Paraesthesia [Recovered/Resolved]
